FAERS Safety Report 7945678-0 (Version None)
Quarter: 2011Q4

REPORT INFORMATION
  Report Type: 
  Country: None (occurrence: None)
  Receive Date: 20111125
  Receipt Date: 20111117
  Transmission Date: 20120403
  Serious: Yes (Other)
  Sender: FDA-Public Use
  Company Number: INT_00043_2011

PATIENT
  Age: 7 Year
  Sex: Female

DRUGS (1)
  1. CEFEPIME [Suspect]
     Indication: PNEUMONIA
     Dosage: (DF)

REACTIONS (5)
  - MYOCLONUS [None]
  - STATUS EPILEPTICUS [None]
  - ALTERED STATE OF CONSCIOUSNESS [None]
  - ELECTROENCEPHALOGRAM ABNORMAL [None]
  - CONFUSIONAL STATE [None]
